FAERS Safety Report 6312890-6 (Version None)
Quarter: 2009Q3

REPORT INFORMATION
  Report Type: 
  Country: None (occurrence: None)
  Receive Date: 20090818
  Receipt Date: 20090806
  Transmission Date: 20100115
  Serious: Yes (Hospitalization, Other)
  Sender: FDA-Public Use
  Company Number: US-TYCO HEALTHCARE/MALLINCKRODT-T200800067

PATIENT

DRUGS (24)
  1. OPTIMARK [Suspect]
     Indication: NUCLEAR MAGNETIC RESONANCE IMAGING
     Dosage: UNK, SINGLE
     Dates: start: 20060814, end: 20060814
  2. OPTIMARK [Suspect]
     Indication: ANGIOGRAM
     Dosage: UNK, SINGLE
     Dates: start: 20070311, end: 20070311
  3. OPTIMARK [Suspect]
  4. OPTIMARK [Suspect]
     Indication: NUCLEAR MAGNETIC RESONANCE IMAGING BRAIN
  5. OMNISCAN [Suspect]
     Indication: NUCLEAR MAGNETIC RESONANCE IMAGING BRAIN
     Dosage: UNK, SINGLE
     Dates: start: 19980920, end: 19980920
  6. OMNISCAN [Suspect]
     Indication: ANGIOGRAM
     Dosage: UNK, SINGLE
     Dates: start: 20060110, end: 20060110
  7. PROCRIT                            /00909301/ [Concomitant]
     Indication: RED BLOOD CELL COUNT
     Dates: start: 19960101
  8. VITAMINS                           /90003601/ [Concomitant]
     Dates: start: 20080201
  9. CARDIAC THERAPY [Concomitant]
     Indication: CARDIAC DISORDER
     Dates: start: 19960101
  10. ANALGESICS [Concomitant]
     Indication: PAIN
     Dates: start: 20020101
  11. ANTI REJECTION [Concomitant]
     Dates: start: 19980101
  12. BLOOD PRESSURE MEDICATION [Concomitant]
     Dates: start: 19980101
  13. CHOLESTEROL- AND TRIGLYCERIDE REDUCERS [Concomitant]
     Dates: start: 19980101
  14. STEROIDS [Concomitant]
  15. NORVASC [Concomitant]
  16. ATIVAN [Concomitant]
  17. LUNESTA [Concomitant]
     Dosage: UNK
  18. REQUIP [Concomitant]
  19. PREDNISONE [Concomitant]
  20. NEXIUM [Concomitant]
  21. SYNTHROID [Concomitant]
  22. NEURONTIN [Concomitant]
  23. LASIX [Concomitant]
  24. CALCITONIN [Concomitant]

REACTIONS (10)
  - ANAL FISSURE [None]
  - CHEST PAIN [None]
  - CONSTIPATION [None]
  - DYSPNOEA [None]
  - HAEMORRHOIDS [None]
  - HYPERHIDROSIS [None]
  - HYPOXIA [None]
  - NAUSEA [None]
  - NEPHROGENIC SYSTEMIC FIBROSIS [None]
  - OFF LABEL USE [None]
